FAERS Safety Report 8956749 (Version 2)
Quarter: 2013Q1

REPORT INFORMATION
  Report Type: Spontaneous
  Country: JP (occurrence: JP)
  Receive Date: 20121211
  Receipt Date: 20130122
  Transmission Date: 20140127
  Serious: Yes (Hospitalization, Other)
  Sender: FDA-Public Use
  Company Number: JP-PFIZER INC-2012310679

PATIENT
  Age: 82 Year
  Sex: Male

DRUGS (7)
  1. SOLANAX [Suspect]
     Indication: ANXIETY
     Dosage: 1.2 MG DAILY
     Route: 048
     Dates: start: 20121209, end: 20121210
  2. SOLANAX [Suspect]
     Indication: TENSION
  3. URIEF [Concomitant]
     Dosage: 8 MG DAILY
     Route: 048
  4. STAYBLA [Concomitant]
     Dosage: 0.2 MG DAILY
     Route: 048
  5. ARICEPT [Concomitant]
     Dosage: 5 MG DAILY
     Route: 048
  6. METHYCOBAL [Concomitant]
     Dosage: 1.5 MG DAILY
     Route: 048
  7. DIFENIDOL [Concomitant]
     Dosage: 75 MG DAILY
     Route: 048

REACTIONS (3)
  - Dizziness [Unknown]
  - Bradycardia [Recovered/Resolved]
  - Blood pressure increased [Recovered/Resolved]
